FAERS Safety Report 7673054-7 (Version None)
Quarter: 2011Q3

REPORT INFORMATION
  Report Type: 
  Country: None (occurrence: None)
  Receive Date: 20110809
  Receipt Date: 20110621
  Transmission Date: 20111222
  Serious: Yes (Life-Threatening, Hospitalization, Disabling)
  Sender: FDA-Public Use
  Company Number: US-GILEAD-2011-0038921

PATIENT
  Sex: Female
  Weight: 62.652 kg

DRUGS (22)
  1. FAMOTIDINE [Concomitant]
     Indication: GASTROOESOPHAGEAL REFLUX DISEASE
  2. ATRIPLA [Suspect]
     Indication: HIV INFECTION
     Dates: start: 20110303, end: 20110419
  3. ATENOLOL [Concomitant]
     Indication: HYPERTENSION
  4. ACYCLOVIR [Concomitant]
     Indication: GENITAL HERPES
  5. TRAZODONE HCL [Concomitant]
     Indication: INSOMNIA
  6. SIMVASTATIN [Concomitant]
     Indication: HYPERLIPIDAEMIA
  7. GEMFIBROZIL [Concomitant]
     Indication: PRODUCT USED FOR UNKNOWN INDICATION
  8. GABAPENTIN [Concomitant]
     Indication: PRODUCT USED FOR UNKNOWN INDICATION
  9. ACETAMINOPHEN [Concomitant]
     Indication: SCIATICA
  10. BUPROPION HCL [Concomitant]
     Indication: DEPRESSION
  11. IBUPROFEN [Concomitant]
     Indication: SCIATICA
  12. BACTRIM [Concomitant]
     Indication: ANTIFUNGAL PROPHYLAXIS
  13. LORAZEPAM [Concomitant]
     Indication: DEPRESSION
  14. METFORMIN HCL [Concomitant]
     Indication: TYPE 2 DIABETES MELLITUS
  15. CETIRIZINE HCL [Concomitant]
     Indication: SEASONAL ALLERGY
  16. CODEINE SULFATE [Concomitant]
     Indication: SCIATICA
  17. TRIAMCINOLONE ACETONIDE [Concomitant]
     Indication: PRODUCT USED FOR UNKNOWN INDICATION
  18. METOCLOPRAMIDE [Concomitant]
     Indication: HYPERTENSION
  19. LAMOTRIGINE [Concomitant]
     Indication: DEPRESSION
  20. TERCONAZOLE [Concomitant]
     Indication: FUNGAL INFECTION
  21. TRUVADA [Suspect]
     Indication: HIV INFECTION
     Dates: start: 20080911, end: 20110419
  22. LISINOPRIL [Concomitant]
     Indication: HYPERTENSION

REACTIONS (3)
  - RENAL FAILURE ACUTE [None]
  - SEPTIC SHOCK [None]
  - LACTIC ACIDOSIS [None]
